FAERS Safety Report 19120633 (Version 3)
Quarter: 2021Q2

REPORT INFORMATION
  Report Type: Report from Study
  Country: CR (occurrence: CR)
  Receive Date: 20210412
  Receipt Date: 20210602
  Transmission Date: 20210717
  Serious: Yes (Other)
  Sender: FDA-Public Use
  Company Number: NVSC2021CR078037

PATIENT
  Sex: Female
  Weight: 46 kg

DRUGS (7)
  1. GALVUS MET [Suspect]
     Active Substance: METFORMIN HYDROCHLORIDE\VILDAGLIPTIN
     Dosage: (50/850 MG) (STARTED APPROXIMATELY 5 MONTHS AGO AND STOPPED APPROXIMATELY 2 MONTHS AGO)
     Route: 065
     Dates: start: 202009, end: 202103
  2. GALVUS MET [Suspect]
     Active Substance: METFORMIN HYDROCHLORIDE\VILDAGLIPTIN
     Dosage: UNK (50/500 MG) (STARTED 2 YEARS AGO)
     Route: 065
     Dates: end: 202009
  3. COMPLEVIT [Concomitant]
     Indication: PRODUCT USED FOR UNKNOWN INDICATION
     Dosage: UNK, QD (STARTED APPROXIMATELY ONE WEEKS AGO)
     Route: 065
  4. GALVUS MET [Suspect]
     Active Substance: METFORMIN HYDROCHLORIDE\VILDAGLIPTIN
     Indication: DIABETES MELLITUS
     Dosage: UNK (50/850 MG) (STARTED APPROXIMATELY 3 OR 4 YEARS AGO AND STOPPED TWO YEARS AGO)
     Route: 065
  5. OMEPRAZOLE. [Concomitant]
     Active Substance: OMEPRAZOLE
     Indication: GASTRIC DISORDER
     Dosage: UNK (STARTED 2 OR 3 MONTHS APPROXIMATELY)
     Route: 065
  6. LIPITOR [Concomitant]
     Active Substance: ATORVASTATIN CALCIUM
     Indication: PRODUCT USED FOR UNKNOWN INDICATION
     Dosage: 1 DF, QD (STARTED ONE WEEK APPROXIMATELY)
     Route: 048
  7. GALVUS MET [Suspect]
     Active Substance: METFORMIN HYDROCHLORIDE\VILDAGLIPTIN
     Dosage: (50/1000 MG) (STARTED APPROXIMATELY 2 MONTHS AGO)
     Route: 065
     Dates: start: 202103

REACTIONS (11)
  - Mobility decreased [Unknown]
  - Joint dislocation [Unknown]
  - Malaise [Unknown]
  - Fall [Unknown]
  - Blood glucose increased [Unknown]
  - Blood glucose decreased [Unknown]
  - Arrhythmia [Unknown]
  - Syncope [Unknown]
  - Gait disturbance [Unknown]
  - Cerebrovascular accident [Unknown]
  - Balance disorder [Unknown]
